FAERS Safety Report 25041027 (Version 1)
Quarter: 2025Q1

REPORT INFORMATION
  Report Type: Spontaneous
  Country: JP (occurrence: JP)
  Receive Date: 20250305
  Receipt Date: 20250305
  Transmission Date: 20250409
  Serious: Yes (Other)
  Sender: Haleon PLC
  Company Number: JP-002147023-NVSJ2024JP012472

PATIENT
  Age: 35 Year
  Sex: Female

DRUGS (1)
  1. VOLTAREN [Suspect]
     Active Substance: DICLOFENAC SODIUM
     Indication: Product used for unknown indication
     Dosage: (DICLOFENAC SODIUM), 25MG,REGIMEN #1, THERAPY DURATION: UNK
     Route: 048
     Dates: start: 201806, end: 202310

REACTIONS (1)
  - Anaphylactic reaction [Unknown]
